FAERS Safety Report 7513050-3 (Version None)
Quarter: 2011Q2

REPORT INFORMATION
  Report Type: 
  Country: None (occurrence: None)
  Receive Date: 20110531
  Receipt Date: 20110517
  Transmission Date: 20111010
  Serious: Yes (Other)
  Sender: FDA-Public Use
  Company Number: ES-JNJFOC-20100203880

PATIENT
  Sex: Male
  Weight: 75 kg

DRUGS (4)
  1. REMICADE [Suspect]
     Route: 042
     Dates: start: 20090808
  2. REMICADE [Suspect]
     Indication: CROHN'S DISEASE
     Route: 042
     Dates: start: 20091030
  3. SALICYLATES NOS [Concomitant]
     Indication: CROHN'S DISEASE
     Dates: start: 20091108
  4. REMICADE [Suspect]
     Route: 042
     Dates: start: 20060701

REACTIONS (1)
  - PULMONARY TUBERCULOSIS [None]
